FAERS Safety Report 13425603 (Version 1)
Quarter: 2017Q2

REPORT INFORMATION
  Report Type: Spontaneous
  Country: US (occurrence: US)
  Receive Date: 20170411
  Receipt Date: 20170411
  Transmission Date: 20170830
  Serious: Yes (Other)
  Sender: FDA-Public Use
  Company Number: US-JNJCP-30000380033

PATIENT
  Sex: Female

DRUGS (2)
  1. NEUTROGENA DEEP MOISTURE DAY WITH SUNSCREEN BROAD SPECTRUM SPF20 [Suspect]
     Active Substance: AVOBENZONE\HOMOSALATE\OCTISALATE\OCTOCRYLENE
     Indication: PRODUCT USED FOR UNKNOWN INDICATION
     Dosage: SMALL AMOUNT ONCE DAILY
     Route: 061
     Dates: start: 20170324, end: 20170324
  2. UNKNOWN [Concomitant]
     Active Substance: UNSPECIFIED INGREDIENT
     Indication: BLOOD PRESSURE ABNORMAL
     Dosage: ONE PILL PER DAY SINCE FIVE YEARS

REACTIONS (2)
  - Application site swelling [Recovering/Resolving]
  - Product lot number issue [Unknown]

NARRATIVE: CASE EVENT DATE: 20170325
